FAERS Safety Report 5238715-8 (Version None)
Quarter: 2007Q1

REPORT INFORMATION
  Report Type: 
  Country: None (occurrence: None)
  Receive Date: 20070215
  Receipt Date: 20070212
  Transmission Date: 20070707
  Serious: Yes (Other)
  Sender: FDA-Public Use
  Company Number: CA-ROXANE LABORATORIES, INC-2007-BP-02063RO

PATIENT
  Age: 71 Year
  Sex: Male

DRUGS (2)
  1. PREDNISONE [Suspect]
     Indication: IMMUNOSUPPRESSANT DRUG THERAPY
  2. SIROLIMUS [Suspect]
     Indication: RENAL DISORDER
     Dosage: 2 MG DAILY
     Dates: start: 20020101, end: 20060201

REACTIONS (3)
  - DRUG INEFFECTIVE [None]
  - FACE OEDEMA [None]
  - OEDEMA PERIPHERAL [None]
